FAERS Safety Report 8426144-5 (Version None)
Quarter: 2012Q2

REPORT INFORMATION
  Report Type: 
  Country: None (occurrence: None)
  Receive Date: 20120611
  Receipt Date: 20120531
  Transmission Date: 20120825
  Serious: Yes (Hospitalization, Other)
  Sender: FDA-Public Use
  Company Number: AU-CELGENEUS-008-AB007-12031483

PATIENT
  Sex: Male
  Weight: 85.4 kg

DRUGS (32)
  1. LACTULOSE [Concomitant]
     Indication: LAXATIVE SUPPORTIVE CARE
     Route: 048
     Dates: start: 20120328, end: 20120401
  2. GABAPENTIN [Concomitant]
     Route: 048
  3. ABRAXANE [Suspect]
     Route: 041
     Dates: start: 20120320, end: 20120402
  4. GEMCITABINE [Suspect]
     Route: 041
     Dates: start: 20120320, end: 20120402
  5. ATORVASTATIN CALCIUM [Concomitant]
     Indication: HYPERCHOLESTEROLAEMIA
     Route: 048
     Dates: start: 20010101, end: 20120301
  6. CIPROFLOXACIN [Concomitant]
     Route: 065
  7. PANTOPRAZOLE [Concomitant]
     Indication: PROPHYLAXIS AGAINST GASTROINTESTINAL ULCER
     Route: 041
     Dates: start: 20120326
  8. HYDROMORPHONE HCL [Concomitant]
     Route: 058
  9. ABRAXANE [Suspect]
     Route: 041
     Dates: start: 20120416
  10. VOLTAREN [Concomitant]
     Indication: ABDOMINAL DISCOMFORT
     Route: 048
     Dates: start: 20111201, end: 20120215
  11. ESOMEPRAZOLE [Concomitant]
     Route: 048
  12. DEXAMETHASONE [Concomitant]
     Indication: NAUSEA
     Route: 058
     Dates: start: 20120329, end: 20120301
  13. METOCLOPRAMIDE [Concomitant]
     Dosage: 30 MILLIGRAM
     Route: 048
     Dates: start: 20120307
  14. CANDESARTAN CILEXETIL [Concomitant]
     Indication: HYPERTENSION
     Route: 048
     Dates: start: 20110101
  15. GRANISETRON [Concomitant]
     Indication: PROPHYLAXIS
     Route: 048
     Dates: start: 20120307
  16. DEXAMETHASONE [Concomitant]
     Indication: PROPHYLAXIS
     Route: 041
     Dates: start: 20120307
  17. DEXAMETHASONE [Concomitant]
     Dosage: 6 MILLIGRAM
     Route: 048
  18. HYDROMORPHONE HCL [Concomitant]
     Dosage: 2-4
     Route: 058
  19. LIANOLAINE [Concomitant]
     Indication: HAEMORRHOIDS
     Route: 061
     Dates: start: 20120329
  20. AMITRIPTLINE HYDROCHLORIDE TAB [Concomitant]
     Route: 048
  21. GABAPENTIN [Concomitant]
     Route: 048
  22. ABRAXANE [Suspect]
     Route: 041
     Dates: start: 20120307, end: 20120402
  23. GEMCITABINE [Suspect]
     Route: 041
     Dates: start: 20120416
  24. CARTIA XT [Concomitant]
     Indication: PROPHYLAXIS
     Route: 048
     Dates: start: 20110101, end: 20120301
  25. CEPHALEXIN [Concomitant]
     Indication: PROPHYLAXIS
     Route: 048
     Dates: start: 20120314, end: 20120320
  26. CYCLIZINE [Concomitant]
     Indication: RASH
     Route: 058
     Dates: start: 20120323
  27. LANTUS [Concomitant]
     Route: 058
  28. GEMCITABINE [Suspect]
     Route: 041
     Dates: start: 20120307
  29. NILSTAT [Concomitant]
     Route: 048
     Dates: start: 20120326, end: 20120403
  30. ENOXAPARIN SODIUM [Concomitant]
     Route: 058
     Dates: start: 20120328, end: 20120401
  31. MOVIPREP [Concomitant]
     Dosage: SACHET
     Route: 048
  32. MOVIPREP [Concomitant]
     Route: 048

REACTIONS (4)
  - COLITIS [None]
  - LIVER FUNCTION TEST ABNORMAL [None]
  - PYREXIA [None]
  - VOMITING [None]
